FAERS Safety Report 4809113-3 (Version None)
Quarter: 2005Q4

REPORT INFORMATION
  Report Type: 
  Country: None (occurrence: None)
  Receive Date: 20051021
  Receipt Date: 20051021
  Transmission Date: 20060501
  Serious: Yes (Other)
  Sender: FDA-Public Use
  Company Number: None

PATIENT
  Age: 36 Year
  Sex: Female
  Weight: 65.7716 kg

DRUGS (2)
  1. CYMBALTA [Suspect]
     Indication: DEPRESSION
     Dosage: 30MG FOR 2 WEEKS  60MG   PO
     Route: 048
     Dates: start: 20050601, end: 20051009
  2. CYMBALTA [Suspect]
     Indication: GENERALISED ANXIETY DISORDER
     Dosage: 30MG FOR 2 WEEKS  60MG   PO
     Route: 048
     Dates: start: 20050601, end: 20051009

REACTIONS (6)
  - ANXIETY [None]
  - CONDITION AGGRAVATED [None]
  - CRYING [None]
  - DRUG EFFECT DECREASED [None]
  - HEADACHE [None]
  - WEIGHT INCREASED [None]
